FAERS Safety Report 7647960-3 (Version None)
Quarter: 2011Q3

REPORT INFORMATION
  Report Type: 
  Country: None (occurrence: None)
  Receive Date: 20110726
  Receipt Date: 20110712
  Transmission Date: 20111222
  Serious: Yes (Hospitalization)
  Sender: FDA-Public Use
  Company Number: 1000022286

PATIENT
  Age: 82 Year
  Sex: Male

DRUGS (5)
  1. BACTRIM [Suspect]
     Indication: URINARY TRACT INFECTION
     Dosage: 2 IN 1 D
     Dates: start: 20110404, end: 20110413
  2. KARDEGIC (ACETYLSALICYLIC LYSINE) (SOLUTION) [Suspect]
     Indication: CARDIOVASCULAR EVENT PROPHYLAXIS
     Dosage: 75 MG (75 MG, 1 IN 1 D), ORAL
     Route: 048
     Dates: end: 20110416
  3. RABEPRAZOLE SODIUM [Concomitant]
     Dates: end: 20110416
  4. SEVIKAR (AMLODIPINE, OLMESARTAN MEDOXOMIL) [Suspect]
     Dosage: 1 DOSAGE FORM (1 DOSAGE FORMS, 1 IN 1 D)
     Dates: end: 20110407
  5. ESCITALOPRAM [Suspect]
     Indication: DEPRESSION
     Dosage: 1 IN 1 D), ORAL
     Route: 048
     Dates: start: 20110401

REACTIONS (11)
  - BALANITIS [None]
  - GAMMA-GLUTAMYLTRANSFERASE INCREASED [None]
  - URINARY TRACT INFECTION STAPHYLOCOCCAL [None]
  - BLOOD BILIRUBIN INCREASED [None]
  - THROMBOCYTOPENIA [None]
  - JAUNDICE CHOLESTATIC [None]
  - RENAL FAILURE ACUTE [None]
  - BLOOD THYROID STIMULATING HORMONE DECREASED [None]
  - ANAEMIA [None]
  - PLATELET COUNT DECREASED [None]
  - PROSTATIC SPECIFIC ANTIGEN INCREASED [None]
